FAERS Safety Report 23491962 (Version 1)
Quarter: 2024Q1

REPORT INFORMATION
  Report Type: Report from Study
  Country: US (occurrence: US)
  Receive Date: 20240207
  Receipt Date: 20240207
  Transmission Date: 20240410
  Serious: No
  Sender: FDA-Public Use
  Company Number: US-HRARD-2021000035

PATIENT
  Age: 47 Year
  Sex: Female

DRUGS (12)
  1. LYSODREN [Suspect]
     Active Substance: MITOTANE
     Indication: Adrenocortical carcinoma
     Dosage: 500 MG TWICE DAILY
     Route: 048
     Dates: start: 20210120
  2. LYSODREN [Suspect]
     Active Substance: MITOTANE
     Indication: Adrenocortical carcinoma
     Dosage: 500 MG 3 TABLETS TWICE DAILY
     Route: 048
  3. AMLODIPINE TAB 5MG [Concomitant]
     Indication: Product used for unknown indication
  4. PREDNISONE [Concomitant]
     Active Substance: PREDNISONE
     Indication: Product used for unknown indication
  5. SYNTHROID [Concomitant]
     Active Substance: LEVOTHYROXINE SODIUM
     Indication: Product used for unknown indication
  6. ZOFRAN TAB 4MG [Concomitant]
     Indication: Product used for unknown indication
  7. FLUDROCORT TAB 0.1MG [Concomitant]
     Indication: Product used for unknown indication
  8. LISINOPRIL TAB 40MG [Concomitant]
     Indication: Product used for unknown indication
  9. LEVOTHYROXIN TAB 75MCG [Concomitant]
     Indication: Product used for unknown indication
  10. LOSARTAN POT TAB 100MG [Concomitant]
     Indication: Product used for unknown indication
  11. OXYCODONE [Concomitant]
     Active Substance: OXYCODONE\OXYCODONE HYDROCHLORIDE
     Indication: Product used for unknown indication
  12. solu-cortef inj 250mg [Concomitant]
     Indication: Product used for unknown indication

REACTIONS (3)
  - Wrong technique in product usage process [Recovered/Resolved]
  - Product use complaint [Recovered/Resolved]
  - Product dose omission issue [Recovered/Resolved]

NARRATIVE: CASE EVENT DATE: 20210311
